FAERS Safety Report 7804532-5 (Version None)
Quarter: 2011Q4

REPORT INFORMATION
  Report Type: 
  Country: None (occurrence: None)
  Receive Date: 20111010
  Receipt Date: 20111004
  Transmission Date: 20120403
  Serious: Yes (Other)
  Sender: FDA-Public Use
  Company Number: US-AMGEN-USASP2011046395

PATIENT
  Age: 51 Year
  Sex: Male

DRUGS (1)
  1. ENBREL [Suspect]
     Indication: PSORIATIC ARTHROPATHY
     Dosage: 50 MG, QWK
     Dates: start: 20050401

REACTIONS (6)
  - HYPOAESTHESIA [None]
  - INFECTION [None]
  - PARAESTHESIA [None]
  - BALANCE DISORDER [None]
  - VISUAL IMPAIRMENT [None]
  - SINUSITIS [None]
